FAERS Safety Report 12304412 (Version 1)
Quarter: 2016Q2

REPORT INFORMATION
  Report Type: Spontaneous
  Country: GB (occurrence: GB)
  Receive Date: 20160426
  Receipt Date: 20160426
  Transmission Date: 20160815
  Serious: Yes (Other)
  Sender: FDA-Public Use
  Company Number: GB-ACCORD-039916

PATIENT
  Age: 60 Year
  Sex: Male
  Weight: 123 kg

DRUGS (12)
  1. HUMULIN I [Concomitant]
     Active Substance: INSULIN HUMAN
     Dosage: USE AS DIRECTED
     Dates: start: 20151113
  2. METOPROLOL. [Concomitant]
     Active Substance: METOPROLOL
     Dates: start: 20150506
  3. NAPROXEN. [Concomitant]
     Active Substance: NAPROXEN
     Dates: start: 20150506
  4. BYDUREON [Concomitant]
     Active Substance: EXENATIDE
     Dates: start: 20160318
  5. OMEPRAZOLE. [Concomitant]
     Active Substance: OMEPRAZOLE
     Indication: PROPHYLAXIS
     Dosage: TO PROTECT STOMACH FROM ASPIRIN AND DIC.
     Dates: start: 20150506
  6. ALPHOSYL [Concomitant]
     Dates: start: 20150506
  7. ASPIRIN. [Concomitant]
     Active Substance: ASPIRIN
     Dates: start: 20150506
  8. ALLOPURINOL. [Concomitant]
     Active Substance: ALLOPURINOL
     Dosage: IN THE MORNING
     Dates: start: 20150506
  9. LOSARTAN. [Concomitant]
     Active Substance: LOSARTAN
     Dates: start: 20150506
  10. AMLODIPINE [Suspect]
     Active Substance: AMLODIPINE BESYLATE
     Indication: PRODUCT USED FOR UNKNOWN INDICATION
     Dates: start: 20160322
  11. ATORVASTATIN [Concomitant]
     Active Substance: ATORVASTATIN
     Dates: start: 20150506
  12. NIZORAL [Concomitant]
     Active Substance: KETOCONAZOLE
     Dates: start: 20150506

REACTIONS (3)
  - Chest discomfort [Recovered/Resolved]
  - Swelling face [Recovered/Resolved]
  - Dyspnoea [Recovered/Resolved]
